FAERS Safety Report 4856034-6 (Version None)
Quarter: 2005Q4

REPORT INFORMATION
  Report Type: 
  Country: None (occurrence: None)
  Receive Date: 20051216
  Receipt Date: 20051205
  Transmission Date: 20060501
  Serious: Yes (Other)
  Sender: FDA-Public Use
  Company Number: DE-JNJFOC-20051201624

PATIENT
  Sex: Female
  Weight: 75 kg

DRUGS (10)
  1. IMODIUM 2 [Suspect]
     Indication: SUICIDE ATTEMPT
     Route: 048
  2. FENISTIL [Suspect]
     Indication: SUICIDE ATTEMPT
     Route: 048
  3. GELONIDA [Suspect]
     Route: 048
  4. GELONIDA [Suspect]
     Indication: SUICIDE ATTEMPT
     Route: 048
  5. IBUHEXAL [Suspect]
     Indication: SUICIDE ATTEMPT
     Route: 048
  6. LEFAX [Suspect]
     Indication: SUICIDE ATTEMPT
     Route: 048
  7. PANTOZOL [Suspect]
     Indication: SUICIDE ATTEMPT
     Route: 048
  8. STAPHYLEX [Suspect]
     Indication: SUICIDE ATTEMPT
     Route: 065
  9. VOLTAREN [Suspect]
     Indication: SUICIDE ATTEMPT
     Route: 048
  10. XUSAL [Suspect]
     Indication: SUICIDE ATTEMPT
     Route: 048

REACTIONS (8)
  - ALANINE AMINOTRANSFERASE INCREASED [None]
  - ANURIA [None]
  - ASPARTATE AMINOTRANSFERASE INCREASED [None]
  - BRAIN OEDEMA [None]
  - COLONIC ATONY [None]
  - COMA [None]
  - HYPOTENSION [None]
  - SUICIDE ATTEMPT [None]
